FAERS Safety Report 13181745 (Version 1)
Quarter: 2017Q1

REPORT INFORMATION
  Report Type: Spontaneous
  Country: US (occurrence: US)
  Receive Date: 20170202
  Receipt Date: 20170202
  Transmission Date: 20170428
  Serious: Yes (Death)
  Sender: FDA-Public Use
  Company Number: US-VIFOR (INTERNATIONAL) INC.-VIT-2017-00803

PATIENT
  Sex: Female

DRUGS (27)
  1. FLUTICASONE PROPIONATE. [Concomitant]
     Active Substance: FLUTICASONE PROPIONATE
  2. PLAVIX [Concomitant]
     Active Substance: CLOPIDOGREL BISULFATE
  3. RENVELA [Concomitant]
     Active Substance: SEVELAMER CARBONATE
  4. ERGOCALCIFEROL. [Concomitant]
     Active Substance: ERGOCALCIFEROL
  5. VELTASSA [Suspect]
     Active Substance: PATIROMER
     Indication: HYPERKALAEMIA
     Route: 048
     Dates: start: 20160203
  6. ALIGN [Concomitant]
     Active Substance: BIFIDOBACTERIUM LONGUM SUBSP. INFANTIS
  7. ATORVASTATIN CALCIUM. [Concomitant]
     Active Substance: ATORVASTATIN CALCIUM
  8. GLUCOSE [Concomitant]
     Active Substance: DEXTROSE
  9. GLYCERYL TRINITRATE [Concomitant]
     Active Substance: NITROGLYCERIN
  10. SENOKOT [Concomitant]
     Active Substance: SENNOSIDES
  11. DEXILANT [Concomitant]
     Active Substance: DEXLANSOPRAZOLE
  12. LISINOPRIL. [Concomitant]
     Active Substance: LISINOPRIL
  13. LOPERAMIDE HYDROCHLORIDE. [Concomitant]
     Active Substance: LOPERAMIDE HYDROCHLORIDE
  14. NO DRUG NAME [Concomitant]
  15. BEANO [Concomitant]
     Active Substance: ASPERGILLUS NIGER .ALPHA.-GALACTOSIDASE
  16. CLONIDINE HYDROCHLORIDE. [Concomitant]
     Active Substance: CLONIDINE HYDROCHLORIDE
  17. SODIUM BICARBONATE. [Concomitant]
     Active Substance: SODIUM BICARBONATE
  18. INSULIN [Concomitant]
     Active Substance: INSULIN NOS
  19. ISOSORBIDE MONONITRATE. [Concomitant]
     Active Substance: ISOSORBIDE MONONITRATE
  20. SINEMET [Concomitant]
     Active Substance: CARBIDOPA\LEVODOPA
  21. ALPRAZOLAM. [Concomitant]
     Active Substance: ALPRAZOLAM
  22. CARAFATE [Concomitant]
     Active Substance: SUCRALFATE
  23. NEURONTIN [Concomitant]
     Active Substance: GABAPENTIN
  24. OCEAN SALINE NASAL SPRAY [Concomitant]
     Active Substance: SODIUM CHLORIDE
  25. AMOXICILLIN. [Concomitant]
     Active Substance: AMOXICILLIN
  26. METOPROLOL SUCCINATE. [Concomitant]
     Active Substance: METOPROLOL SUCCINATE
  27. MACROGOL 3350 [Concomitant]
     Active Substance: POLYETHYLENE GLYCOL 3350

REACTIONS (1)
  - Death [Fatal]
